FAERS Safety Report 19677199 (Version 2)
Quarter: 2021Q3

REPORT INFORMATION
  Report Type: Spontaneous
  Country: FI (occurrence: FI)
  Receive Date: 20210809
  Receipt Date: 20210924
  Transmission Date: 20211014
  Serious: Yes (Other)
  Sender: FDA-Public Use
  Company Number: FI-BIOGEN-2021BI01035915

PATIENT
  Age: 54 Year
  Sex: Female
  Weight: 65 kg

DRUGS (1)
  1. TECFIDERA [Suspect]
     Active Substance: DIMETHYL FUMARATE
     Indication: RELAPSING-REMITTING MULTIPLE SCLEROSIS
     Route: 065
     Dates: start: 2015

REACTIONS (5)
  - Motor dysfunction [Unknown]
  - Back injury [Not Recovered/Not Resolved]
  - Hypothyroidism [Unknown]
  - Multiple sclerosis [Unknown]
  - Glioblastoma [Unknown]

NARRATIVE: CASE EVENT DATE: 20210506
